FAERS Safety Report 13056254 (Version 2)
Quarter: 2022Q1

REPORT INFORMATION
  Report Type: Spontaneous
  Country: US (occurrence: US)
  Receive Date: 20161222
  Receipt Date: 20220105
  Transmission Date: 20220423
  Serious: Yes (Death, Hospitalization)
  Sender: FDA-Public Use
  Company Number: US-NAPPMUNDI-USA-2016-0134409

PATIENT
  Age: 68 Year
  Sex: Female
  Weight: 68 kg

DRUGS (4)
  1. DILAUDID [Suspect]
     Active Substance: HYDROMORPHONE HYDROCHLORIDE
     Indication: Breakthrough pain
     Dosage: 8 MG, Q4H (PRN)
     Route: 048
  2. METHADONE [Suspect]
     Active Substance: METHADONE HYDROCHLORIDE
     Indication: Pain
     Dosage: UNK, Q6H
     Route: 065
  3. METHADONE [Suspect]
     Active Substance: METHADONE HYDROCHLORIDE
     Dosage: 5 MG, Q8H
     Route: 065
     Dates: start: 20160803
  4. CRIZOTINIB [Suspect]
     Active Substance: CRIZOTINIB
     Indication: Pancreatic carcinoma
     Dosage: 250 MG, BID
     Route: 048
     Dates: start: 20160803, end: 20160822

REACTIONS (18)
  - Neoplasm progression [Fatal]
  - Gastrointestinal pain [Recovering/Resolving]
  - White blood cell count increased [Recovering/Resolving]
  - Blood sodium decreased [Recovering/Resolving]
  - Blood lactic acid increased [Recovering/Resolving]
  - Memory impairment [Recovering/Resolving]
  - Gait disturbance [Recovering/Resolving]
  - Confusional state [Recovering/Resolving]
  - Somnolence [Recovering/Resolving]
  - Nausea [Recovering/Resolving]
  - Dizziness [Recovering/Resolving]
  - Drug ineffective [Recovering/Resolving]
  - Decreased appetite [Unknown]
  - Odynophagia [Unknown]
  - Oedema peripheral [Unknown]
  - Productive cough [Unknown]
  - Abdominal pain [Unknown]
  - Performance status decreased [Unknown]

NARRATIVE: CASE EVENT DATE: 20160810
